FAERS Safety Report 10068262 (Version 1)
Quarter: 2014Q2

REPORT INFORMATION
  Report Type: Spontaneous
  Country: US (occurrence: US)
  Receive Date: 20140409
  Receipt Date: 20140409
  Transmission Date: 20141212
  Serious: No
  Sender: FDA-Public Use
  Company Number: US-PFIZER INC-2014098791

PATIENT
  Age: 77 Year
  Sex: Female
  Weight: 89 kg

DRUGS (1)
  1. GABAPENTIN [Suspect]
     Indication: OCCIPITAL NEURALGIA
     Dosage: UNK
     Dates: start: 201402, end: 201404

REACTIONS (1)
  - Drug ineffective [Unknown]
